FAERS Safety Report 4709791-3 (Version None)
Quarter: 2005Q3

REPORT INFORMATION
  Report Type: 
  Country: None (occurrence: None)
  Receive Date: 20050708
  Receipt Date: 20050629
  Transmission Date: 20060218
  Serious: Yes (Death, Life-Threatening)
  Sender: FDA-Public Use
  Company Number: JP-JNJFOC-20050700350

PATIENT
  Sex: Female

DRUGS (49)
  1. FENTANYL [Suspect]
     Route: 062
     Dates: start: 20050517, end: 20050526
  2. FENTANYL [Suspect]
     Indication: CANCER PAIN
     Route: 062
     Dates: start: 20050517, end: 20050526
  3. DUROTEP [Suspect]
     Route: 062
  4. DUROTEP [Suspect]
     Indication: CANCER PAIN
     Route: 062
  5. MORPHINE HCL ELIXIR [Concomitant]
     Dosage: PER RECTUM
     Route: 049
     Dates: start: 20050520, end: 20050612
  6. MORPHINE HCL ELIXIR [Concomitant]
     Route: 049
     Dates: start: 20050520, end: 20050612
  7. MORPHINE HCL ELIXIR [Concomitant]
     Route: 049
     Dates: start: 20050520, end: 20050612
  8. MORPHINE HCL ELIXIR [Concomitant]
     Route: 049
     Dates: start: 20050520, end: 20050612
  9. MORPHINE HCL ELIXIR [Concomitant]
     Indication: CANCER PAIN
     Route: 049
     Dates: start: 20050520, end: 20050612
  10. SUCRALFATE [Concomitant]
     Indication: RETCHING
     Route: 049
  11. SUCRALFATE [Concomitant]
     Indication: STOMACH DISCOMFORT
     Route: 049
  12. MAGNESIUM OXIDE [Concomitant]
     Route: 049
  13. MAGNESIUM OXIDE [Concomitant]
     Indication: DYSCHEZIA
     Route: 049
  14. MAGNESIUM OXIDE [Concomitant]
     Indication: CONSTIPATION
     Route: 049
  15. KETOPROFEN [Concomitant]
     Indication: PAIN
  16. MAINTENANCE MEDIUM [Concomitant]
  17. MAINTENANCE MEDIUM [Concomitant]
  18. MAINTENANCE MEDIUM [Concomitant]
     Indication: FLUID REPLACEMENT
     Dosage: WITH ACETIC ACID AND GLUCOSE
  19. THIAMINE MONOPHOSPHATE DISULFIDE [Concomitant]
  20. THIAMINE MONOPHOSPHATE DISULFIDE [Concomitant]
     Indication: VITAMIN SUPPLEMENTATION
  21. BETAMETHASONE [Concomitant]
     Route: 049
  22. BETAMETHASONE [Concomitant]
     Route: 049
  23. SODIUM BICARBONATE [Concomitant]
     Indication: DYSCHEZIA
  24. SODIUM BICARBONATE [Concomitant]
     Indication: CONSTIPATION
  25. SODIUM PICOSULFATE [Concomitant]
     Indication: DYSCHEZIA
     Route: 049
  26. SODIUM PICOSULFATE [Concomitant]
     Indication: CONSTIPATION
     Route: 049
  27. DOMPERIDONE [Concomitant]
     Indication: VOMITING
     Route: 054
  28. RILMAZAFONE HYDROCHLORIDE [Concomitant]
     Indication: INSOMNIA
  29. METOCLOPRAMIDE [Concomitant]
     Indication: VOMITING
  30. FAMOTIDINE [Concomitant]
  31. FAMOTIDINE [Concomitant]
     Indication: GASTRIC ULCER
  32. BROMHEXINE HYDROCHLORIDE [Concomitant]
  33. DICLOFENAC SODIUM [Concomitant]
     Indication: PYREXIA
     Dosage: 25-50 MG PER DAY
     Route: 054
  34. BROMAZEPAM [Concomitant]
  35. BROMAZEPAM [Concomitant]
     Indication: SLEEP DISORDER
  36. MIDAZOLAM HCL [Concomitant]
     Indication: SEDATION
  37. PROCHLORPERAZINE [Concomitant]
     Indication: VOMITING
     Route: 049
  38. PROCHLORPERAZINE [Concomitant]
     Indication: NAUSEA
     Route: 049
  39. POVIDONE IODINE [Concomitant]
  40. METHYLPHENIDATE HCL [Concomitant]
     Indication: SOMNOLENCE
     Route: 049
  41. CANDESARTAN [Concomitant]
     Indication: HYPERTENSION
     Route: 049
  42. REBAMIPIDE [Concomitant]
     Indication: GASTRIC ULCER
     Route: 049
  43. TRIAZOLAM [Concomitant]
     Indication: INSOMNIA
     Route: 049
  44. LOXOPROFEN [Concomitant]
     Indication: PAIN
     Route: 049
  45. TPN [Concomitant]
  46. TPN [Concomitant]
  47. TPN [Concomitant]
  48. TPN [Concomitant]
     Indication: NUTRITIONAL SUPPORT
  49. SENNOSIDE [Concomitant]
     Indication: CONSTIPATION
     Route: 049

REACTIONS (2)
  - GUM NEOPLASM MALIGNANT STAGE UNSPECIFIED [None]
  - MALIGNANT NEOPLASM PROGRESSION [None]
